FAERS Safety Report 13104699 (Version 1)
Quarter: 2017Q1

REPORT INFORMATION
  Report Type: Spontaneous
  Country: US (occurrence: US)
  Receive Date: 20170111
  Receipt Date: 20170111
  Transmission Date: 20170428
  Serious: Yes (Life-Threatening)
  Sender: FDA-Public Use
  Company Number: None

PATIENT
  Age: 57 Year
  Sex: Male
  Weight: 79.65 kg

DRUGS (1)
  1. FLOMAX [Suspect]
     Active Substance: TAMSULOSIN HYDROCHLORIDE
     Indication: PROSTATITIS
     Route: 048
     Dates: start: 20161231, end: 20170104

REACTIONS (4)
  - Choking [None]
  - Retrograde ejaculation [None]
  - Dysphonia [None]
  - Nasal congestion [None]

NARRATIVE: CASE EVENT DATE: 20170102
